FAERS Safety Report 12497980 (Version 1)
Quarter: 2016Q2

REPORT INFORMATION
  Report Type: Spontaneous
  Country: US (occurrence: US)
  Receive Date: 20160626
  Receipt Date: 20160626
  Transmission Date: 20160815
  Serious: No
  Sender: FDA-Public Use
  Company Number: US-ACTELION-A-NJ2016-134459

PATIENT
  Age: 61 Year
  Sex: Female
  Weight: 68.27 kg

DRUGS (1)
  1. UPTRAVI [Suspect]
     Active Substance: SELEXIPAG
     Indication: PULMONARY HYPERTENSION
     Dosage: 200 MG, BID
     Route: 048
     Dates: start: 20160223

REACTIONS (3)
  - Nausea [Unknown]
  - Myalgia [Unknown]
  - Headache [Unknown]
